FAERS Safety Report 4358256-X (Version None)
Quarter: 2004Q2

REPORT INFORMATION
  Report Type: 
  Country: None (occurrence: None)
  Receive Date: 20040511
  Receipt Date: 20040511
  Transmission Date: 20050107
  Serious: Yes (Life-Threatening, Hospitalization)
  Sender: FDA-Public Use
  Company Number: None

PATIENT
  Age: 47 Year
  Sex: Male
  Weight: 103.2 kg

DRUGS (8)
  1. OLANZAPINE [Suspect]
  2. COMBIVIR [Concomitant]
  3. CITALOPRAM [Concomitant]
  4. BACTRIM DS [Concomitant]
  5. CLOTRIMAZOLE TROCHE [Concomitant]
  6. LOPINAVIR 133.3 MG/RITONAVIR [Concomitant]
  7. BACLOFEN [Concomitant]
  8. CLOPIDOGREL BISULFATE [Concomitant]

REACTIONS (4)
  - MUSCULOSKELETAL STIFFNESS [None]
  - MYALGIA [None]
  - NAUSEA [None]
  - PYREXIA [None]
